FAERS Safety Report 14208137 (Version 1)
Quarter: 2017Q4

REPORT INFORMATION
  Report Type: Spontaneous
  Country: US (occurrence: US)
  Receive Date: 20171120
  Receipt Date: 20171120
  Transmission Date: 20180321
  Serious: Yes (Other)
  Sender: FDA-Public Use
  Company Number: None

PATIENT
  Age: 57 Year
  Sex: Male
  Weight: 94.5 kg

DRUGS (2)
  1. KIRKLAND DAILY MULTIVITYAMIN [Concomitant]
  2. LISINOPRIL. [Suspect]
     Active Substance: LISINOPRIL
     Indication: HYPERTENSION
     Dosage: ?          QUANTITY:90 TABLET(S);?
     Route: 048
     Dates: start: 20171003, end: 20171004

REACTIONS (2)
  - Product substitution issue [None]
  - Hypertension [None]

NARRATIVE: CASE EVENT DATE: 20171030
